FAERS Safety Report 5468517-9 (Version None)
Quarter: 2007Q3

REPORT INFORMATION
  Report Type: 
  Country: None (occurrence: None)
  Receive Date: 20070926
  Receipt Date: 20070807
  Transmission Date: 20080115
  Serious: No
  Sender: FDA-Public Use
  Company Number: US-BRISTOL-MYERS SQUIBB COMPANY-13869839

PATIENT
  Sex: Female
  Weight: 77 kg

DRUGS (5)
  1. ORENCIA [Suspect]
     Indication: RHEUMATOID ARTHRITIS
     Route: 042
     Dates: start: 20070718
  2. HYDROCHLOROTHIAZIDE [Concomitant]
  3. LOTENSIN [Concomitant]
  4. PREDNISONE [Concomitant]
  5. FIORICET [Concomitant]

REACTIONS (2)
  - DIZZINESS [None]
  - HEADACHE [None]
